FAERS Safety Report 7258788-0 (Version None)
Quarter: 2011Q1

REPORT INFORMATION
  Report Type: 
  Country: None (occurrence: None)
  Receive Date: 20110129
  Receipt Date: 20100517
  Transmission Date: 20110831
  Serious: No
  Sender: FDA-Public Use
  Company Number: US-ABBOTT-10P-163-0645216-00

PATIENT
  Age: 54 Year
  Sex: Female

DRUGS (9)
  1. TOPAMAX [Concomitant]
     Indication: MIGRAINE
     Dosage: 100 MG DAILY AT BEDTIME
  2. LYRICA [Concomitant]
     Indication: MIGRAINE
  3. HUMIRA [Suspect]
     Indication: PSORIASIS
     Dates: start: 20091021
  4. CHLOROCON [Concomitant]
     Indication: MUSCLE SPASMS
  5. ALLERXDF-AM [Concomitant]
     Indication: ASTHMA
     Dosage: 4MG-MORNING, 8MG-BEDTIME AS NEEDED
  6. LEVATHYROID [Concomitant]
     Indication: PRODUCT USED FOR UNKNOWN INDICATION
     Route: 048
  7. MIGRANAL SPRAY [Concomitant]
     Indication: MIGRAINE
     Dosage: EVERY 4 HOURS AS NEEDED
  8. SUCRALFATE [Concomitant]
     Indication: MUSCLE SPASMS
     Dosage: 1-4 DAILY AS NEEDED
  9. HYDROCHLOROTHIAZIDE [Concomitant]
     Indication: DIURETIC THERAPY

REACTIONS (4)
  - JOINT SWELLING [None]
  - ARTHRALGIA [None]
  - RASH MACULAR [None]
  - ERYTHEMA [None]
